FAERS Safety Report 9472962 (Version 1)
Quarter: 2013Q3

REPORT INFORMATION
  Report Type: Spontaneous
  Country: US (occurrence: US)
  Receive Date: 20130823
  Receipt Date: 20130823
  Transmission Date: 20140515
  Serious: Yes (Other)
  Sender: FDA-Public Use
  Company Number: US-BRISTOL-MYERS SQUIBB COMPANY-17285396

PATIENT
  Age: 65 Year
  Sex: Female
  Weight: 67.12 kg

DRUGS (16)
  1. SPRYCEL [Suspect]
     Indication: CHRONIC MYELOID LEUKAEMIA
     Dosage: DOSE WAS DECREASED TO 70MG ON 21DEC2011 ?50MG DAILY WHICH WAS RESTARTED ON 25JUL2012
     Dates: start: 20101224
  2. BIOTIN [Concomitant]
  3. BLACK COHOSH [Concomitant]
  4. CALCIUM [Concomitant]
  5. COZAAR [Concomitant]
  6. CYMBALTA [Concomitant]
  7. FEVERFEW [Concomitant]
  8. IMITREX [Concomitant]
  9. LYRICA [Concomitant]
  10. MULTIVITAMIN [Concomitant]
  11. SENNA [Concomitant]
  12. SYNTHROID [Concomitant]
  13. VERAPAMIL [Concomitant]
  14. VITAMIN B12 [Concomitant]
  15. VITAMIN C [Concomitant]
  16. VITAMIN D [Concomitant]

REACTIONS (1)
  - Pleural effusion [Unknown]
